FAERS Safety Report 18343123 (Version 2)
Quarter: 2022Q4

REPORT INFORMATION
  Report Type: Spontaneous
  Country: US (occurrence: US)
  Receive Date: 20201005
  Receipt Date: 20221018
  Transmission Date: 20230113
  Serious: Yes (Other)
  Sender: FDA-Public Use
  Company Number: US-SAARTEMIS-SAC202009300806

PATIENT
  Age: 48 Year
  Sex: Male

DRUGS (1)
  1. ZANTAC [Suspect]
     Active Substance: RANITIDINE HYDROCHLORIDE
     Indication: Gastrooesophageal reflux disease
     Dosage: 150 MG, QD
     Route: 065
     Dates: start: 198601, end: 201912

REACTIONS (5)
  - Bladder cancer [Unknown]
  - Renal cancer [Unknown]
  - Hepatic cancer [Unknown]
  - Gastric cancer stage IV [Unknown]
  - Prostate cancer [Unknown]

NARRATIVE: CASE EVENT DATE: 19860101
